FAERS Safety Report 7880787-6 (Version None)
Quarter: 2011Q4

REPORT INFORMATION
  Report Type: 
  Country: None (occurrence: None)
  Receive Date: 20111101
  Receipt Date: 20111018
  Transmission Date: 20120403
  Serious: Yes (Hospitalization)
  Sender: FDA-Public Use
  Company Number: SE-VALEANT-2011VX003063

PATIENT
  Age: 90 Year
  Sex: Male

DRUGS (7)
  1. FOLIC ACID [Concomitant]
     Route: 065
  2. ENALAPRIL [Concomitant]
     Route: 065
  3. METOPROLOL TARTRATE [Concomitant]
     Route: 065
  4. EGAZIL [Concomitant]
     Route: 065
  5. BEHEPAN [Concomitant]
     Route: 065
  6. MESTINON [Suspect]
     Indication: MYASTHENIA GRAVIS
     Route: 048
     Dates: start: 20110603
  7. ASPIRIN [Concomitant]
     Route: 065

REACTIONS (4)
  - DIARRHOEA [None]
  - DIZZINESS [None]
  - VOMITING [None]
  - NAUSEA [None]
